FAERS Safety Report 5625829-3 (Version None)
Quarter: 2008Q1

REPORT INFORMATION
  Report Type: 
  Country: None (occurrence: None)
  Receive Date: 20080214
  Receipt Date: 20080211
  Transmission Date: 20080703
  Serious: Yes (Death)
  Sender: FDA-Public Use
  Company Number: IL-NOVOPROD-272070

PATIENT

DRUGS (1)
  1. NOVOSEVEN [Suspect]
     Indication: HAEMORRHAGE
     Dosage: 7.2 MG, BID
     Route: 042
     Dates: start: 20070101, end: 20070101

REACTIONS (1)
  - DEATH [None]
